FAERS Safety Report 4776015-0 (Version None)
Quarter: 2005Q3

REPORT INFORMATION
  Report Type: 
  Country: None (occurrence: None)
  Receive Date: 20050922
  Receipt Date: 20050412
  Transmission Date: 20060218
  Serious: Yes (Hospitalization)
  Sender: FDA-Public Use
  Company Number: GBWYE577112APR05

PATIENT
  Sex: Female
  Weight: 52 kg

DRUGS (7)
  1. ENBREL [Suspect]
     Indication: RHEUMATOID ARTHRITIS
     Route: 058
     Dates: start: 20040101, end: 20050308
  2. LEVOTHYROXINE SODIUM [Concomitant]
  3. FOLIC ACID [Concomitant]
  4. ALENDRONATE SODIUM [Concomitant]
  5. DEXTROPROPOXYPHENE HYDROCHLORIDE/PARACETAMOL [Concomitant]
  6. DUOVENT [Concomitant]
  7. METHOTREXATE [Concomitant]

REACTIONS (2)
  - FELTY'S SYNDROME [None]
  - NEUTROPENIA [None]
